FAERS Safety Report 15004349 (Version 1)
Quarter: 2018Q2

REPORT INFORMATION
  Report Type: Spontaneous
  Country: US (occurrence: US)
  Receive Date: 20180524
  Receipt Date: 20180524
  Transmission Date: 20180711
  Serious: Yes (Life-Threatening, Hospitalization)
  Sender: FDA-Public Use
  Company Number: None

PATIENT
  Age: 73 Year
  Sex: Female
  Weight: 68 kg

DRUGS (2)
  1. PHYTONADIONE 10MG [Concomitant]
     Dates: start: 20170705, end: 20170705
  2. KCENTRA [Suspect]
     Active Substance: COAGULATION FACTOR IX HUMAN\COAGULATION FACTOR VII HUMAN\COAGULATION FACTOR X HUMAN\PROTEIN C\PROTEIN S HUMAN\PROTHROMBIN
     Indication: SUBDURAL HAEMATOMA
     Route: 042
     Dates: start: 20170705, end: 20170705

REACTIONS (8)
  - Mental status changes [None]
  - Generalised tonic-clonic seizure [None]
  - Headache [None]
  - Subdural haematoma [None]
  - Dysarthria [None]
  - Anticoagulation drug level above therapeutic [None]
  - Confusional state [None]
  - Aphasia [None]

NARRATIVE: CASE EVENT DATE: 20170709
